FAERS Safety Report 6213948-2 (Version None)
Quarter: 2009Q2

REPORT INFORMATION
  Report Type: 
  Country: None (occurrence: None)
  Receive Date: 20090601
  Receipt Date: 20090601
  Transmission Date: 20091009
  Serious: Yes (Other)
  Sender: FDA-Public Use
  Company Number: None

PATIENT
  Age: 61 Year
  Sex: Male
  Weight: 86.1834 kg

DRUGS (16)
  1. VIAGRA [Suspect]
     Indication: ERECTILE DYSFUNCTION
     Dosage: 50MG ONCE NEW YEARS EVE PO
     Route: 048
     Dates: start: 20080101, end: 20080101
  2. ZETIA [Concomitant]
  3. SERTRALINE HCL [Concomitant]
  4. RANITIDINE [Concomitant]
  5. AMBIEN [Concomitant]
  6. DIAZEPAM [Concomitant]
  7. VIAGRA [Concomitant]
  8. POTASSIUM CHLORIDE [Concomitant]
  9. QUININE SULFATE [Concomitant]
  10. VIT C [Concomitant]
  11. OMEGA 3 FISH OIL EPA [Concomitant]
  12. VIT E [Concomitant]
  13. FOLIC ACID [Concomitant]
  14. ASPIRIN [Concomitant]
  15. VIT B [Concomitant]
  16. BELLADONNA [Concomitant]

REACTIONS (5)
  - BALANCE DISORDER [None]
  - DEAFNESS NEUROSENSORY [None]
  - EAR DISCOMFORT [None]
  - NAUSEA [None]
  - TINNITUS [None]
